FAERS Safety Report 6821484-5 (Version None)
Quarter: 2010Q3

REPORT INFORMATION
  Report Type: 
  Country: None (occurrence: None)
  Receive Date: 20100707
  Receipt Date: 20081003
  Transmission Date: 20110219
  Serious: No
  Sender: FDA-Public Use
  Company Number: US-PFIZER INC-2008080248

PATIENT
  Sex: Female
  Weight: 154.54 kg

DRUGS (12)
  1. ZOLOFT [Suspect]
     Indication: DEPRESSION
     Dates: start: 20071101, end: 20080901
  2. LISINOPRIL [Concomitant]
  3. METFORMIN HCL [Concomitant]
  4. ACTOS [Concomitant]
  5. GLYBURIDE [Concomitant]
  6. INSULIN GLARGINE [Concomitant]
  7. PRAVASTATIN [Concomitant]
  8. MULTI-VITAMINS [Concomitant]
  9. CALCIUM CARBONATE [Concomitant]
  10. VITAMIN D [Concomitant]
  11. CINNAMON [Concomitant]
  12. CHONDROITIN/GLUCOSAMINE [Concomitant]

REACTIONS (6)
  - DEPRESSION [None]
  - DRY MOUTH [None]
  - INSOMNIA [None]
  - OEDEMA PERIPHERAL [None]
  - POLLAKIURIA [None]
  - WEIGHT INCREASED [None]
